FAERS Safety Report 5989996-4 (Version None)
Quarter: 2008Q4

REPORT INFORMATION
  Report Type: 
  Country: None (occurrence: None)
  Receive Date: 20081209
  Receipt Date: 20081209
  Transmission Date: 20090506
  Serious: Yes (Disabling)
  Sender: FDA-Public Use
  Company Number: None

PATIENT
  Age: 21 Year
  Sex: Female
  Weight: 51 kg

DRUGS (1)
  1. NUVARING [Suspect]
     Indication: CONTRACEPTION
     Dosage: 0.120MG AND 0.015 DAY VAG
     Route: 067
     Dates: start: 20081128, end: 20081208

REACTIONS (5)
  - AGGRESSION [None]
  - BREAST PAIN [None]
  - DEPRESSED MOOD [None]
  - INSOMNIA [None]
  - VOMITING [None]
